FAERS Safety Report 25058281 (Version 1)
Quarter: 2025Q1

REPORT INFORMATION
  Report Type: Spontaneous
  Country: US (occurrence: None)
  Receive Date: 20250309
  Receipt Date: 20250309
  Transmission Date: 20250409
  Serious: No
  Sender: FDA-CTU
  Company Number: None

PATIENT
  Age: 71 Year
  Sex: Female
  Weight: 81.45 kg

DRUGS (10)
  1. PRALUENT [Suspect]
     Active Substance: ALIROCUMAB
     Indication: Low density lipoprotein increased
     Route: 050
     Dates: start: 20250109
  2. ROSUVASTATIN [Concomitant]
     Active Substance: ROSUVASTATIN
  3. METOPROLOL [Concomitant]
     Active Substance: METOPROLOL
  4. METFORMIN [Concomitant]
     Active Substance: METFORMIN HYDROCHLORIDE
  5. PRALUENT [Concomitant]
     Active Substance: ALIROCUMAB
  6. LOW DOSE ASPIRIN [Concomitant]
     Active Substance: ASPIRIN
  7. MULTI-VITAMIN [Concomitant]
     Active Substance: .ALPHA.-TOCOPHEROL ACETATE, DL-\ASCORBIC ACID\CYANOCOBALAMIN\FLUORIDE ION\FOLIC ACID\NIACIN\PYRIDOXI
  8. CALCIUM\VITAMIN D [Concomitant]
     Active Substance: CALCIUM\VITAMIN D
  9. VITAMIN D [Concomitant]
     Active Substance: VITAMIN D NOS
  10. REPATHA [Suspect]
     Active Substance: EVOLOCUMAB

REACTIONS (2)
  - Diarrhoea [None]
  - Quality of life decreased [None]

NARRATIVE: CASE EVENT DATE: 20250309
